APPROVED DRUG PRODUCT: ETHOSUXIMIDE
Active Ingredient: ETHOSUXIMIDE
Strength: 250MG/5ML
Dosage Form/Route: SYRUP;ORAL
Application: A040253 | Product #001 | TE Code: AA
Applicant: PHARMACEUTICAL ASSOCIATES INC
Approved: Nov 22, 2000 | RLD: No | RS: No | Type: RX